FAERS Safety Report 9819406 (Version 2)
Quarter: 2014Q1

REPORT INFORMATION
  Report Type: Report from Study
  Country: US (occurrence: US)
  Receive Date: 20140115
  Receipt Date: 20140123
  Transmission Date: 20141002
  Serious: Yes (Life-Threatening, Hospitalization, Other)
  Sender: FDA-Public Use
  Company Number: PHEH2014US001164

PATIENT
  Age: 24 Year
  Sex: Male
  Weight: 63.49 kg

DRUGS (2)
  1. GILENYA [Suspect]
     Indication: MULTIPLE SCLEROSIS
     Dosage: 0.5 MG, QD
     Route: 048
     Dates: start: 20131223, end: 20140111
  2. ANTIDEPRESSANTS [Concomitant]

REACTIONS (5)
  - Suicide attempt [Recovering/Resolving]
  - Intentional overdose [Recovering/Resolving]
  - Hypoaesthesia [Recovering/Resolving]
  - Central nervous system lesion [Recovering/Resolving]
  - Depression [Recovering/Resolving]
